FAERS Safety Report 7429842-5 (Version None)
Quarter: 2011Q2

REPORT INFORMATION
  Report Type: 
  Country: None (occurrence: None)
  Receive Date: 20110419
  Receipt Date: 20110419
  Transmission Date: 20111010
  Serious: Yes (Hospitalization, Disabling)
  Sender: FDA-Public Use
  Company Number: None

PATIENT
  Sex: Female
  Weight: 107.5025 kg

DRUGS (2)
  1. TOPIRAMATE [Suspect]
     Indication: MIGRAINE
     Dosage: 2 CAPSULES NIGHTLY PO
     Route: 048
     Dates: start: 20110407, end: 20110414
  2. TOPIRAMATE [Suspect]
     Indication: MIGRAINE
     Dosage: 2 TABLETS NIGHTLY PO
     Route: 048
     Dates: start: 20110301, end: 20110407

REACTIONS (6)
  - STRESS [None]
  - AGITATION [None]
  - ABNORMAL BEHAVIOUR [None]
  - MOOD ALTERED [None]
  - DEPRESSED MOOD [None]
  - SUICIDAL IDEATION [None]
